FAERS Safety Report 5991114-3 (Version None)
Quarter: 2008Q4

REPORT INFORMATION
  Report Type: 
  Country: None (occurrence: None)
  Receive Date: 20081202
  Receipt Date: 20080506
  Transmission Date: 20090506
  Serious: Yes (Hospitalization)
  Sender: FDA-Public Use
  Company Number: WAES 0805USA01252

PATIENT
  Age: 82 Year
  Sex: Male

DRUGS (2)
  1. FOSAMAX [Suspect]
     Indication: HIP FRACTURE
     Dosage: PO
     Route: 048
     Dates: start: 20010531, end: 20060601
  2. [THERAPY UNSPECIFIED] [Concomitant]

REACTIONS (4)
  - ANXIETY [None]
  - DEPRESSION [None]
  - JAW FRACTURE [None]
  - OSTEONECROSIS [None]
